FAERS Safety Report 9684728 (Version 1)
Quarter: 2013Q4

REPORT INFORMATION
  Report Type: Spontaneous
  Country: US (occurrence: US)
  Receive Date: 20131112
  Receipt Date: 20131112
  Transmission Date: 20140711
  Serious: Yes (Other)
  Sender: FDA-Public Use
  Company Number: ALCN2013US005613

PATIENT
  Age: 89 Year
  Sex: Female
  Weight: 49.43 kg

DRUGS (2)
  1. SIMBRINZA [Suspect]
     Dosage: 1 DF, TID
     Route: 047
     Dates: start: 20130718, end: 20130725
  2. LATANOPROST [Concomitant]
     Dosage: 1 DF, QHS
     Route: 047
     Dates: start: 2008

REACTIONS (5)
  - Dizziness [Recovered/Resolved]
  - Asthenia [Recovered/Resolved]
  - Blood pressure fluctuation [Recovered/Resolved]
  - Dysstasia [Recovered/Resolved]
  - Gait disturbance [Recovered/Resolved]
